FAERS Safety Report 25767776 (Version 1)
Quarter: 2025Q3

REPORT INFORMATION
  Report Type: Spontaneous
  Country: US (occurrence: US)
  Receive Date: 20250905
  Receipt Date: 20250905
  Transmission Date: 20251021
  Serious: Yes (Other)
  Sender: PFIZER
  Company Number: US-PFIZER INC-202500175135

PATIENT
  Sex: Female

DRUGS (1)
  1. TIVDAK [Suspect]
     Active Substance: TISOTUMAB VEDOTIN-TFTV
     Indication: Ovarian cancer
     Dosage: 2 MG/KG, EVERY 3 WEEKS

REACTIONS (3)
  - Neuropathy peripheral [Recovering/Resolving]
  - Dry eye [Unknown]
  - Off label use [Unknown]
